FAERS Safety Report 10238787 (Version 1)
Quarter: 2014Q2

REPORT INFORMATION
  Report Type: Report from Study
  Country: US (occurrence: US)
  Receive Date: 20140616
  Receipt Date: 20140616
  Transmission Date: 20141212
  Serious: Yes (Other)
  Sender: FDA-Public Use
  Company Number: US-JNJFOC-20140606481

PATIENT
  Age: 48 Year
  Sex: Female
  Weight: 99.79 kg

DRUGS (1)
  1. REMICADE [Suspect]
     Indication: PSORIATIC ARTHROPATHY
     Route: 042
     Dates: start: 20140326

REACTIONS (2)
  - Emphysema [Not Recovered/Not Resolved]
  - Adverse event [Not Recovered/Not Resolved]
